FAERS Safety Report 15755457 (Version 5)
Quarter: 2020Q4

REPORT INFORMATION
  Report Type: Report from Study
  Country: US (occurrence: US)
  Receive Date: 20181224
  Receipt Date: 20201027
  Transmission Date: 20210113
  Serious: No
  Sender: FDA-Public Use
  Company Number: US-IPSEN BIOPHARMACEUTICALS, INC.-2018-19353

PATIENT
  Age: 7 Year
  Sex: Male
  Weight: 19 kg

DRUGS (13)
  1. DYSPORT [Suspect]
     Active Substance: ABOBOTULINUMTOXINA
     Indication: MUSCLE SPASTICITY
     Dosage: 500 INTERNATIONAL UNITS
     Route: 065
     Dates: start: 20180410, end: 20180410
  2. CLONAZEPAM. [Concomitant]
     Active Substance: CLONAZEPAM
     Indication: ANXIETY
     Dosage: PRN - AS NEEDED
     Dates: start: 20190115
  3. DYSPORT [Suspect]
     Active Substance: ABOBOTULINUMTOXINA
     Indication: MUSCLE SPASTICITY
  4. ONFI [Concomitant]
     Active Substance: CLOBAZAM
     Dosage: EVERY EVENING
     Dates: start: 2013
  5. ONFI [Concomitant]
     Active Substance: CLOBAZAM
     Dosage: EACH EVENING
     Dates: start: 20180516
  6. BACLOFEN. [Concomitant]
     Active Substance: BACLOFEN
     Indication: MUSCLE SPASTICITY
     Route: 037
     Dates: start: 20170613
  7. DYSPORT [Suspect]
     Active Substance: ABOBOTULINUMTOXINA
     Indication: OFF LABEL USE
  8. ONFI [Concomitant]
     Active Substance: CLOBAZAM
     Indication: SEIZURE
     Dosage: EVERY MORNING
     Dates: start: 2013
  9. ONFI [Concomitant]
     Active Substance: CLOBAZAM
     Dosage: EACH MORNING
     Dates: start: 20180516
  10. DYSPORT [Suspect]
     Active Substance: ABOBOTULINUMTOXINA
     Indication: MUSCLE SPASTICITY
  11. TOPAMAX [Concomitant]
     Active Substance: TOPIRAMATE
     Indication: SEIZURE
     Dates: start: 2012
  12. SALBUTAMOL [Concomitant]
     Active Substance: ALBUTEROL
     Dates: start: 20181124, end: 20181130
  13. AZITHROMYCIN ANHYDROUS. [Concomitant]
     Active Substance: AZITHROMYCIN ANHYDROUS
     Dates: start: 20181124, end: 20181203

REACTIONS (2)
  - Off label use [Unknown]
  - Bronchitis [Recovered/Resolved]

NARRATIVE: CASE EVENT DATE: 20181124
